FAERS Safety Report 9409882 (Version 3)
Quarter: 2013Q3

REPORT INFORMATION
  Report Type: Spontaneous
  Country: BR (occurrence: BR)
  Receive Date: 20130719
  Receipt Date: 20130906
  Transmission Date: 20140515
  Serious: Yes (Other)
  Sender: FDA-Public Use
  Company Number: ALCN2013BR000536

PATIENT
  Sex: 0

DRUGS (1)
  1. DUOTRAV [Suspect]
     Indication: GLAUCOMA
     Dosage: UNK UNK, BID
     Route: 047
     Dates: start: 201206

REACTIONS (6)
  - Visual acuity reduced [Not Recovered/Not Resolved]
  - Eye irritation [Not Recovered/Not Resolved]
  - Ocular discomfort [Unknown]
  - Lacrimation increased [Unknown]
  - Eye pain [Unknown]
  - Erectile dysfunction [Unknown]
